FAERS Safety Report 5256570-7 (Version None)
Quarter: 2007Q1

REPORT INFORMATION
  Report Type: 
  Country: None (occurrence: None)
  Receive Date: 20070301
  Receipt Date: 20070216
  Transmission Date: 20070707
  Serious: Yes (Hospitalization)
  Sender: FDA-Public Use
  Company Number: 2007SP003237

PATIENT
  Age: 46 Year
  Sex: Female
  Weight: 60.782 kg

DRUGS (5)
  1. PEG-INTRON [Suspect]
     Indication: HEPATITIS C
     Dosage: QW; SC
     Route: 058
     Dates: start: 20060203, end: 20061229
  2. REBETOL [Suspect]
     Indication: HEPATITIS C
     Dosage: 1000 MG;QD;PO
     Route: 048
     Dates: start: 20060203, end: 20061229
  3. VITAMIN B COMPLEX CAP [Concomitant]
  4. IRON [Concomitant]
  5. VITAMIN E [Concomitant]

REACTIONS (2)
  - MYELITIS [None]
  - VIRAL INFECTION [None]
